FAERS Safety Report 13673693 (Version 1)
Quarter: 2017Q2

REPORT INFORMATION
  Report Type: Spontaneous
  Country: FI (occurrence: FI)
  Receive Date: 20170621
  Receipt Date: 20170621
  Transmission Date: 20170830
  Serious: Yes (Hospitalization, Disabling, Other)
  Sender: FDA-Public Use
  Company Number: FI-AMGEN-FINSP2017091516

PATIENT
  Age: 65 Year
  Sex: Female

DRUGS (1)
  1. PROLIA [Suspect]
     Active Substance: DENOSUMAB
     Indication: OSTEOPOROSIS
     Dosage: 60 MG, UNK
     Route: 058
     Dates: start: 20130715, end: 20161208

REACTIONS (6)
  - Blood test abnormal [Unknown]
  - Mastoiditis [Unknown]
  - Weight increased [Unknown]
  - Constipation [Unknown]
  - Musculoskeletal pain [Unknown]
  - Ear infection [Unknown]

NARRATIVE: CASE EVENT DATE: 20160801
